FAERS Safety Report 16813313 (Version 2)
Quarter: 2019Q4

REPORT INFORMATION
  Report Type: Report from Study
  Country: BR (occurrence: BR)
  Receive Date: 20190916
  Receipt Date: 20191210
  Transmission Date: 20200122
  Serious: Yes (Other)
  Sender: FDA-Public Use
  Company Number: BR-BRISTOL-MYERS SQUIBB COMPANY-BMS-2019-015572

PATIENT
  Sex: Female

DRUGS (1)
  1. ABATACEPT [Suspect]
     Active Substance: ABATACEPT
     Indication: RHEUMATOID ARTHRITIS
     Dosage: 250 MG, QMO
     Route: 042
     Dates: end: 201911

REACTIONS (6)
  - Hand fracture [Unknown]
  - Malaise [Unknown]
  - Pain [Unknown]
  - Ear infection [Recovered/Resolved]
  - Arthritis [Unknown]
  - Arthralgia [Unknown]
